FAERS Safety Report 8525450-3 (Version None)
Quarter: 2012Q3

REPORT INFORMATION
  Report Type: 
  Country: None (occurrence: None)
  Receive Date: 20120720
  Receipt Date: 20120712
  Transmission Date: 20120928
  Serious: Yes (Other)
  Sender: FDA-Public Use
  Company Number: JP-JNJFOC-20120700778

PATIENT
  Sex: Male
  Weight: 57 kg

DRUGS (9)
  1. SULFASALAZINE [Concomitant]
     Route: 048
     Dates: start: 20061010, end: 20070216
  2. RACOL [Concomitant]
     Route: 048
     Dates: start: 20061020
  3. REMICADE [Suspect]
     Dosage: THIRD DOSE
     Route: 042
     Dates: start: 20070112, end: 20070302
  4. HUMIRA [Concomitant]
     Route: 065
     Dates: start: 20110101
  5. REMICADE [Suspect]
     Indication: CROHN'S DISEASE
     Route: 042
     Dates: start: 20061208
  6. FLAGYL [Concomitant]
     Route: 048
     Dates: start: 20061020, end: 20070216
  7. AMOXICILLIN [Concomitant]
     Route: 065
  8. LAC-B [Concomitant]
     Route: 048
     Dates: start: 20061010, end: 20070216
  9. REMICADE [Suspect]
     Dosage: 25-NOV (YEAR UNSPECIFIED)
     Route: 042
     Dates: start: 20061125

REACTIONS (2)
  - DERMATITIS PSORIASIFORM [None]
  - ALOPECIA [None]
